FAERS Safety Report 11849517 (Version 2)
Quarter: 2016Q1

REPORT INFORMATION
  Report Type: Spontaneous
  Country: DE (occurrence: DE)
  Receive Date: 20151218
  Receipt Date: 20160122
  Transmission Date: 20160526
  Serious: Yes (Death, Hospitalization)
  Sender: FDA-Public Use
  Company Number: DE-SA-2015SA213919

PATIENT
  Sex: Male

DRUGS (2)
  1. JEVTANA [Suspect]
     Active Substance: CABAZITAXEL
     Indication: PROSTATE CANCER
     Dosage: ROUTE- INFUSION
     Route: 042
     Dates: start: 20141104, end: 20151104
  2. DOCETAXEL. [Concomitant]
     Active Substance: DOCETAXEL
     Dosage: 9 INFUSIONS

REACTIONS (8)
  - Malaise [Unknown]
  - Pneumonia [Fatal]
  - Haematuria [Fatal]
  - Dizziness [Fatal]
  - Asthenia [Fatal]
  - Sepsis [Fatal]
  - Multiple organ dysfunction syndrome [Fatal]
  - Febrile neutropenia [Unknown]

NARRATIVE: CASE EVENT DATE: 20151104
